FAERS Safety Report 6893057-X (Version None)
Quarter: 2010Q3

REPORT INFORMATION
  Report Type: 
  Country: None (occurrence: None)
  Receive Date: 20100731
  Receipt Date: 20090302
  Transmission Date: 20110219
  Serious: No
  Sender: FDA-Public Use
  Company Number: US-PFIZER INC-2008052524

PATIENT
  Sex: Male
  Weight: 71.8 kg

DRUGS (4)
  1. NEURONTIN [Suspect]
     Indication: FIBROMYALGIA
     Dosage: 1800 MG/DAY
  2. VALSARTAN [Concomitant]
  3. ACETYLSALICYLIC ACID SRT [Concomitant]
  4. HALDOL [Concomitant]

REACTIONS (3)
  - BLOOD CHLORIDE DECREASED [None]
  - BLOOD SODIUM DECREASED [None]
  - DRUG INEFFECTIVE [None]
